FAERS Safety Report 5320665-X (Version None)
Quarter: 2007Q2

REPORT INFORMATION
  Report Type: 
  Country: None (occurrence: None)
  Receive Date: 20070509
  Receipt Date: 20070502
  Transmission Date: 20071010
  Serious: Yes (Hospitalization)
  Sender: FDA-Public Use
  Company Number: IT-ROXANE LABORATORIES, INC-2007-BP-06038RO

PATIENT
  Age: 10 Year
  Sex: Female

DRUGS (1)
  1. LOPERAMIDE HCL [Suspect]
     Indication: GASTROENTERITIS
     Dosage: 2 MG X 2 DAYS
     Route: 048

REACTIONS (2)
  - URINARY INCONTINENCE [None]
  - URINARY RETENTION [None]
